FAERS Safety Report 8949839 (Version 1)
Quarter: 2012Q4

REPORT INFORMATION
  Report Type: 
  Country: BR (occurrence: BR)
  Receive Date: 20121206
  Receipt Date: 20121206
  Transmission Date: 20130627
  Serious: Yes (Death, Hospitalization)
  Sender: FDA-Public Use
  Company Number: PHHY2012BR112169

PATIENT
  Age: 78 Year
  Sex: Female

DRUGS (1)
  1. STALEVO [Suspect]
     Indication: DEMENTIA ALZHEIMER^S TYPE
     Dosage: 2 DF, daily
     Route: 048

REACTIONS (4)
  - Parkinson^s disease [Fatal]
  - Dementia Alzheimer^s type [Fatal]
  - Femur fracture [Unknown]
  - Fall [Unknown]
